FAERS Safety Report 4922319-8 (Version None)
Quarter: 2006Q1

REPORT INFORMATION
  Report Type: 
  Country: None (occurrence: None)
  Receive Date: 20060224
  Receipt Date: 20050930
  Transmission Date: 20060701
  Serious: Yes (Hospitalization)
  Sender: FDA-Public Use
  Company Number: PR-MERCK-0510USA01680

PATIENT
  Age: 55 Year
  Sex: Male
  Weight: 86 kg

DRUGS (2)
  1. VIOXX [Suspect]
     Indication: OSTEOARTHRITIS
     Route: 048
     Dates: start: 20010101, end: 20040901
  2. VIOXX [Suspect]
     Route: 048
     Dates: start: 20010101, end: 20040901

REACTIONS (14)
  - ANGINA UNSTABLE [None]
  - ANGIOPATHY [None]
  - CARDIOVASCULAR DISORDER [None]
  - CEREBRAL ISCHAEMIA [None]
  - CHEST PAIN [None]
  - CORONARY ARTERY DISEASE [None]
  - DEPRESSION [None]
  - HYPERTENSION [None]
  - ISCHAEMIA [None]
  - MYOCARDIAL INFARCTION [None]
  - POLYTRAUMATISM [None]
  - PRESCRIBED OVERDOSE [None]
  - TRANSIENT ISCHAEMIC ATTACK [None]
  - URINARY TRACT OBSTRUCTION [None]
